FAERS Safety Report 5074642-7 (Version None)
Quarter: 2006Q3

REPORT INFORMATION
  Report Type: 
  Country: None (occurrence: None)
  Receive Date: 20060803
  Receipt Date: 20060719
  Transmission Date: 20061208
  Serious: Yes (Other)
  Sender: FDA-Public Use
  Company Number: US-2006-019466

PATIENT
  Age: 54 Year
  Sex: Female

DRUGS (2)
  1. BETASERON [Suspect]
     Indication: RELAPSING-REMITTING MULTIPLE SCLEROSIS
     Dosage: 8 MIU, EVERY 2D, SUBCUTANEOUS
     Route: 058
     Dates: start: 20050531
  2. ANTIEPILEPTICS [Suspect]
     Indication: CONVULSION
     Dates: start: 20060101

REACTIONS (5)
  - FATIGUE [None]
  - HAEMATOCHEZIA [None]
  - INJECTION SITE DISCOLOURATION [None]
  - INJECTION SITE INFECTION [None]
  - MALAISE [None]
